FAERS Safety Report 19996918 (Version 2)
Quarter: 2021Q4

REPORT INFORMATION
  Report Type: Spontaneous
  Country: US (occurrence: US)
  Receive Date: 20211026
  Receipt Date: 20211123
  Transmission Date: 20220303
  Serious: No
  Sender: FDA-Public Use
  Company Number: US-ALKERMES INC.-ALK-2021-005472

PATIENT
  Age: 22 Year
  Sex: Male
  Weight: 104.31 kg

DRUGS (5)
  1. VIVITROL [Suspect]
     Active Substance: NALTREXONE
     Indication: Alcoholism
     Dosage: 380 MILLIGRAM, EVERY 3 WEEKS
     Route: 030
     Dates: start: 20211112
  2. VIVITROL [Suspect]
     Active Substance: NALTREXONE
     Dosage: 380 MILLIGRAM, EVERY 3 WEEKS
     Route: 030
     Dates: start: 20211012, end: 20211012
  3. VIVITROL [Suspect]
     Active Substance: NALTREXONE
     Dosage: 380 MILLIGRAM, EVERY 3 WEEKS
     Route: 030
     Dates: start: 20210919, end: 20210919
  4. VIVITROL [Suspect]
     Active Substance: NALTREXONE
     Dosage: 380 MILLIGRAM, EVERY 3 WEEKS
     Route: 030
     Dates: start: 20210828, end: 20210828
  5. VIVITROL [Suspect]
     Active Substance: NALTREXONE
     Dosage: 380 MILLIGRAM, EVERY 3 WEEKS
     Route: 030
     Dates: start: 202107, end: 202107

REACTIONS (1)
  - Off label use [Not Recovered/Not Resolved]

NARRATIVE: CASE EVENT DATE: 20210830
